FAERS Safety Report 9429540 (Version 1)
Quarter: 2013Q3

REPORT INFORMATION
  Report Type: Spontaneous
  Country: US (occurrence: US)
  Receive Date: 20130730
  Receipt Date: 20130730
  Transmission Date: 20140515
  Serious: No
  Sender: FDA-Public Use
  Company Number: US-ABBOTT-12P-163-1018795-00

PATIENT
  Sex: Female
  Weight: 77.63 kg

DRUGS (1)
  1. NIASPAN (COATED) [Suspect]
     Indication: HIGH DENSITY LIPOPROTEIN
     Dosage: AT HS
     Dates: start: 20111117, end: 20111121

REACTIONS (7)
  - Paresis [Recovered/Resolved]
  - Dysstasia [Recovered/Resolved]
  - Melanocytic naevus [Unknown]
  - Fatigue [Unknown]
  - Skin depigmentation [Unknown]
  - Skin lesion [Unknown]
  - Asthenia [Recovered/Resolved]
